FAERS Safety Report 25534178 (Version 1)
Quarter: 2025Q3

REPORT INFORMATION
  Report Type: Spontaneous
  Country: US (occurrence: US)
  Receive Date: 20250709
  Receipt Date: 20250709
  Transmission Date: 20251021
  Serious: No
  Sender: BAYER HEALTHCARE PHARMACEUTICALS INC.
  Company Number: US-BAYER-2025A086435

PATIENT
  Age: 81 Year
  Sex: Male

DRUGS (2)
  1. NUBEQA [Suspect]
     Active Substance: DAROLUTAMIDE
     Dates: start: 2024
  2. NUBEQA [Suspect]
     Active Substance: DAROLUTAMIDE
     Dosage: 1200 MG, OM (2 DOSES OF NUBEQA (4 TABLETS) INSTEAD OF 1 DOSE THIS MORNING)
     Dates: start: 20250627

REACTIONS (1)
  - Extra dose administered [None]

NARRATIVE: CASE EVENT DATE: 20250627
